FAERS Safety Report 9439302 (Version 2)
Quarter: 2013Q3

REPORT INFORMATION
  Report Type: Spontaneous
  Country: US (occurrence: US)
  Receive Date: 20130804
  Receipt Date: 20130829
  Transmission Date: 20140515
  Serious: No
  Sender: FDA-Public Use
  Company Number: US-B.I. PHARMACEUTICALS,INC./RIDGEFIELD-2013-BI-22629BP

PATIENT
  Age: 87 Year
  Sex: Male

DRUGS (1)
  1. ATROVENT [Suspect]
     Indication: RHINORRHOEA
     Dosage: 126 MCG
     Route: 045
     Dates: start: 20130726

REACTIONS (1)
  - No therapeutic response [Not Recovered/Not Resolved]
